FAERS Safety Report 9929652 (Version 1)
Quarter: 2014Q1

REPORT INFORMATION
  Report Type: Spontaneous
  Country: US (occurrence: US)
  Receive Date: 20140227
  Receipt Date: 20140227
  Transmission Date: 20141002
  Serious: No
  Sender: FDA-Public Use
  Company Number: US-ASTRAZENECA-2014SE09283

PATIENT
  Age: 77 Year
  Sex: Female
  Weight: 59 kg

DRUGS (5)
  1. TOPROL-XL [Suspect]
     Indication: HEART INJURY
     Route: 048
     Dates: start: 2003
  2. TOPROL-XL [Suspect]
     Indication: HEART INJURY
     Dosage: GENERIC METOPROLOL SUCCINATE
     Route: 048
  3. TOPROL-XL [Suspect]
     Indication: HEART INJURY
     Dosage: GENERIC METOPROLOL SUCCINATE PAR
     Route: 065
  4. OTC CALCIUM [Concomitant]
     Indication: SUPPLEMENTATION THERAPY
     Dosage: DAILY
     Route: 048
  5. AVISTA [Concomitant]
     Indication: BREAST CANCER
     Route: 048

REACTIONS (5)
  - Heart rate increased [Unknown]
  - Malaise [Unknown]
  - Heart rate irregular [Unknown]
  - Extrasystoles [Unknown]
  - Off label use [Not Recovered/Not Resolved]
